FAERS Safety Report 4316545-9 (Version None)
Quarter: 2004Q1

REPORT INFORMATION
  Report Type: 
  Country: None (occurrence: None)
  Receive Date: 20040308
  Receipt Date: 20040202
  Transmission Date: 20041129
  Serious: No
  Sender: FDA-Public Use
  Company Number: PHEH2003US08826

PATIENT
  Age: 76 Year
  Sex: Male
  Weight: 74.8 kg

DRUGS (5)
  1. GLEEVEC [Suspect]
     Indication: CHRONIC MYELOID LEUKAEMIA
     Dosage: 400 MG, QD, ORAL
     Route: 048
     Dates: start: 20010524
  2. COUMADIN [Concomitant]
  3. CARDIZEM [Concomitant]
  4. HYTRIN [Concomitant]
  5. ATENOLOL [Concomitant]

REACTIONS (4)
  - ABDOMINAL PAIN [None]
  - DIPLOPIA [None]
  - PARALYSIS [None]
  - PERIORBITAL OEDEMA [None]
